FAERS Safety Report 5000598-9 (Version None)
Quarter: 2006Q2

REPORT INFORMATION
  Report Type: 
  Country: None (occurrence: None)
  Receive Date: 20060501
  Receipt Date: 20060417
  Transmission Date: 20061013
  Serious: Yes (Hospitalization, Other)
  Sender: FDA-Public Use
  Company Number: 2006046959

PATIENT
  Sex: Female
  Weight: 55.3388 kg

DRUGS (7)
  1. NEURONTIN [Suspect]
     Indication: HYPOAESTHESIA
     Dosage: 1200 MG (600 MG, 2 IN 1 D), ORAL
     Route: 048
  2. NEURONTIN [Suspect]
     Indication: PAIN
     Dosage: 1200 MG (600 MG, 2 IN 1 D), ORAL
     Route: 048
  3. LYRICA [Suspect]
     Indication: NEURALGIA
     Dosage: 50 MG (50 MG, 1 IN 1 D), ORAL
     Route: 048
     Dates: start: 20050101, end: 20060403
  4. KLONOPIN [Concomitant]
  5. CALCIUM (CALCIUM) [Concomitant]
  6. LIPITOR [Concomitant]
  7. PROVIGIL [Concomitant]

REACTIONS (12)
  - BREAST CANCER FEMALE [None]
  - DRUG EFFECT DECREASED [None]
  - FALL [None]
  - HALLUCINATION, VISUAL [None]
  - HERPES ZOSTER [None]
  - MYALGIA [None]
  - NAUSEA [None]
  - NEUROPATHY [None]
  - OEDEMA PERIPHERAL [None]
  - PYREXIA [None]
  - ROTATOR CUFF SYNDROME [None]
  - VISION BLURRED [None]
